FAERS Safety Report 16905387 (Version 3)
Quarter: 2020Q2

REPORT INFORMATION
  Report Type: Spontaneous
  Country: US (occurrence: US)
  Receive Date: 20191010
  Receipt Date: 20200424
  Transmission Date: 20200713
  Serious: No
  Sender: FDA-Public Use
  Company Number: US-SA-2019SA279173

PATIENT
  Age: 20 Year
  Sex: Male

DRUGS (3)
  1. DUPIXENT [Suspect]
     Active Substance: DUPILUMAB
     Dosage: 300 MG, QW
     Route: 058
  2. DUPIXENT [Suspect]
     Active Substance: DUPILUMAB
     Indication: DERMATITIS ATOPIC
     Dosage: 300 MG, QOW
     Route: 058
     Dates: start: 201805
  3. DUPIXENT [Suspect]
     Active Substance: DUPILUMAB
     Dosage: 300 MG, QOW
     Route: 058

REACTIONS (8)
  - Skin exfoliation [Unknown]
  - Dermatitis atopic [Unknown]
  - Skin bacterial infection [Unknown]
  - Rash [Unknown]
  - Therapeutic response shortened [Unknown]
  - Erythema [Unknown]
  - Dry skin [Unknown]
  - Erythema [Unknown]

NARRATIVE: CASE EVENT DATE: 202002
